FAERS Safety Report 18835953 (Version 1)
Quarter: 2021Q1

REPORT INFORMATION
  Report Type: Spontaneous
  Country: US (occurrence: US)
  Receive Date: 20210203
  Receipt Date: 20210203
  Transmission Date: 20210419
  Serious: Yes (Hospitalization)
  Sender: FDA-Public Use
  Company Number: None

PATIENT
  Age: 65 Year
  Sex: Female
  Weight: 84.2 kg

DRUGS (19)
  1. ALBUTEROL. [Concomitant]
     Active Substance: ALBUTEROL
  2. LOSARTAN?HYDROCHLOROTHIAZIDE [Concomitant]
     Active Substance: HYDROCHLOROTHIAZIDE\LOSARTAN
  3. MELATONIN [Concomitant]
     Active Substance: MELATONIN
  4. POTASSIUM CHLORIDE. [Concomitant]
     Active Substance: POTASSIUM CHLORIDE
  5. CALCIUM/VITAMIN D [Concomitant]
     Active Substance: CALCIUM\VITAMIN D
  6. CYANOCOBALAMIN. [Concomitant]
     Active Substance: CYANOCOBALAMIN
  7. SERTRALINE [Concomitant]
     Active Substance: SERTRALINE HYDROCHLORIDE
  8. DICLOFENAC [Concomitant]
     Active Substance: DICLOFENAC
  9. TRAZODONE [Concomitant]
     Active Substance: TRAZODONE HYDROCHLORIDE
  10. VALACYCLOVIR [Concomitant]
     Active Substance: VALACYCLOVIR HYDROCHLORIDE
  11. BAMLANIVIMAB FOR EUA [Suspect]
     Active Substance: BAMLANIVIMAB
     Indication: COVID-19
     Route: 042
     Dates: start: 20201214, end: 20201214
  12. AMITRIPTYLINE [Concomitant]
     Active Substance: AMITRIPTYLINE
  13. ATORVASTATIN [Concomitant]
     Active Substance: ATORVASTATIN
  14. AMLODIPINE [Concomitant]
     Active Substance: AMLODIPINE BESYLATE
  15. GABAPENTIN. [Concomitant]
     Active Substance: GABAPENTIN
  16. ASCORBIC ACID. [Concomitant]
     Active Substance: ASCORBIC ACID
  17. CARVEDILOL. [Concomitant]
     Active Substance: CARVEDILOL
  18. FLUTICASONE NASAL [Concomitant]
     Active Substance: FLUTICASONE
  19. OMEPRAZOLE. [Concomitant]
     Active Substance: OMEPRAZOLE

REACTIONS (14)
  - Tachycardia [None]
  - Chills [None]
  - Pulmonary embolism [None]
  - Dyspnoea [None]
  - Chest pain [None]
  - Erythema [None]
  - Abdominal pain [None]
  - Urticaria [None]
  - Cough [None]
  - Heart rate increased [None]
  - Oedema peripheral [None]
  - Tachypnoea [None]
  - Pyrexia [None]
  - Nausea [None]

NARRATIVE: CASE EVENT DATE: 20210111
